FAERS Safety Report 4440536-0 (Version None)
Quarter: 2004Q3

REPORT INFORMATION
  Report Type: 
  Country: None (occurrence: None)
  Receive Date: 20040831
  Receipt Date: 20040621
  Transmission Date: 20050211
  Serious: Yes (Hospitalization)
  Sender: FDA-Public Use
  Company Number: US013346

PATIENT
  Age: 54 Year
  Sex: Female
  Weight: 63.5036 kg

DRUGS (1)
  1. GABITRIL [Suspect]
     Indication: SLEEP DISORDER
     Dosage: 96 MG ONCE ORAL
     Route: 048
     Dates: start: 20040605, end: 20040605

REACTIONS (2)
  - ACCIDENTAL OVERDOSE [None]
  - CONVULSION [None]
